FAERS Safety Report 9674509 (Version 2)
Quarter: 2013Q4

REPORT INFORMATION
  Report Type: Spontaneous
  Country: GB (occurrence: GB)
  Receive Date: 20131107
  Receipt Date: 20131107
  Transmission Date: 20140711
  Serious: Yes (Other)
  Sender: FDA-Public Use
  Company Number: GB-DRREDDYS-GER/UKI/12/0024547

PATIENT
  Age: 59 Year
  Sex: Female
  Weight: 117 kg

DRUGS (9)
  1. CLOPIDOGREL [Suspect]
     Indication: ACUTE CORONARY SYNDROME
  2. CITALOPRAM [Concomitant]
     Indication: PRODUCT USED FOR UNKNOWN INDICATION
     Dates: start: 20120206, end: 20120425
  3. CITALOPRAM [Concomitant]
     Dates: start: 20120501
  4. OLANZAPINE [Concomitant]
     Indication: PRODUCT USED FOR UNKNOWN INDICATION
     Dates: start: 20120228, end: 20120425
  5. OLANZAPINE [Concomitant]
     Dates: start: 20120501
  6. THIAMINE [Concomitant]
     Indication: PRODUCT USED FOR UNKNOWN INDICATION
     Dates: start: 20120228, end: 20120424
  7. THIAMINE [Concomitant]
     Dates: start: 20120501
  8. VITAMIN B SUBSTANCES [Concomitant]
     Indication: PRODUCT USED FOR UNKNOWN INDICATION
     Dates: start: 20120228, end: 20120424
  9. VITAMIN B SUBSTANCES [Concomitant]
     Dates: start: 20120501

REACTIONS (2)
  - Drug reaction with eosinophilia and systemic symptoms [Recovered/Resolved]
  - Rash maculo-papular [Recovered/Resolved]
